FAERS Safety Report 6699321-1 (Version None)
Quarter: 2010Q2

REPORT INFORMATION
  Report Type: 
  Country: None (occurrence: None)
  Receive Date: 20100426
  Receipt Date: 20100414
  Transmission Date: 20101027
  Serious: Yes (Hospitalization)
  Sender: FDA-Public Use
  Company Number: FR-001836

PATIENT
  Age: 92 Year
  Sex: Female

DRUGS (12)
  1. MINIRIN [Suspect]
     Indication: HYPERTENSION
     Dosage: 60 UG  SUBLINGUAL 160 UG ORAL
     Route: 060
     Dates: start: 20100316, end: 20100325
  2. MINIRIN [Suspect]
     Indication: NOCTURIA
     Dosage: 60 UG  SUBLINGUAL 160 UG ORAL
     Route: 060
     Dates: start: 20100316, end: 20100325
  3. MINIRIN [Suspect]
     Indication: HYPERTENSION
     Dosage: 60 UG  SUBLINGUAL 160 UG ORAL
     Route: 060
     Dates: start: 20090302, end: 20100325
  4. MINIRIN [Suspect]
     Indication: NOCTURIA
     Dosage: 60 UG  SUBLINGUAL 160 UG ORAL
     Route: 060
     Dates: start: 20090302, end: 20100325
  5. KARDEGIC (KARDEGIC) [Concomitant]
  6. SIMVASTATINE A (SIMVASTATIN) [Concomitant]
  7. CALCIPRAT (CALCIUM CARBONATE) [Concomitant]
  8. VITAMIN D [Concomitant]
  9. NOCTRAN 10 (NOCTRAN 10) [Concomitant]
  10. CODOLIPRANE (PANADEINE CO) [Concomitant]
  11. ACETAMINOPHEN [Concomitant]
  12. COTAREG (CO-DIOVAN) TABLET 160 MG [Suspect]
     Dosage: ORAL
     Route: 048

REACTIONS (8)
  - BLOOD OSMOLARITY DECREASED [None]
  - BLOOD POTASSIUM DECREASED [None]
  - CONFUSIONAL STATE [None]
  - FALL [None]
  - HAEMATOMA [None]
  - HYPONATRAEMIA [None]
  - OFF LABEL USE [None]
  - SCAPULA FRACTURE [None]
